FAERS Safety Report 4530025-7 (Version None)
Quarter: 2004Q4

REPORT INFORMATION
  Report Type: 
  Country: None (occurrence: None)
  Receive Date: 20041217
  Receipt Date: 20041213
  Transmission Date: 20050328
  Serious: Yes (Other)
  Sender: FDA-Public Use
  Company Number: PHEH2004US13288

PATIENT
  Sex: Female

DRUGS (1)
  1. METHERGINE [Suspect]
     Dosage: 0.05 MG, ONCE/SINGLE
     Route: 058

REACTIONS (3)
  - FOETAL HEART RATE DECREASED [None]
  - FOETAL HEART RATE INCREASED [None]
  - MEDICATION ERROR [None]
